FAERS Safety Report 5680853-X (Version None)
Quarter: 2008Q1

REPORT INFORMATION
  Report Type: 
  Country: None (occurrence: None)
  Receive Date: 20080326
  Receipt Date: 20080318
  Transmission Date: 20080703
  Serious: Yes (Other)
  Sender: FDA-Public Use
  Company Number: US-PFIZER INC-2008017930

PATIENT
  Sex: Female
  Weight: 90.7 kg

DRUGS (8)
  1. BEXTRA [Suspect]
     Indication: PAIN MANAGEMENT
     Route: 048
  2. DRUG, UNSPECIFIED [Suspect]
  3. ZYRTEC [Concomitant]
  4. OXYCODONE HCL [Concomitant]
  5. XANAX [Concomitant]
  6. SOMA [Concomitant]
  7. PROTONIX [Concomitant]
  8. PROMETHAZINE [Concomitant]
     Route: 048

REACTIONS (1)
  - SKIN LESION [None]
